FAERS Safety Report 9849506 (Version 2)
Quarter: 2014Q1

REPORT INFORMATION
  Report Type: Spontaneous
  Country: GB (occurrence: GB)
  Receive Date: 20140128
  Receipt Date: 20140311
  Transmission Date: 20141002
  Serious: Yes (Other)
  Sender: FDA-Public Use
  Company Number: GB-AMGEN-GBRSP2014005065

PATIENT
  Age: 44 Year
  Sex: Female

DRUGS (6)
  1. XGEVA [Suspect]
     Indication: METASTASES TO BONE
     Dosage: 120 MG, Q4WK
     Route: 058
     Dates: start: 20130718
  2. OXCARBAZEPINE [Suspect]
     Indication: PAIN
     Dosage: 150 MG, BID
     Route: 048
     Dates: start: 201308
  3. DICLOFENAC [Concomitant]
     Indication: PAIN
     Dosage: 75 MG, BID
     Route: 048
     Dates: start: 201308
  4. CLONAZEPAM [Concomitant]
     Indication: PAIN
     Dosage: 500 MUG, QHS
     Dates: start: 201308
  5. CODEINE [Concomitant]
     Indication: PAIN
     Dosage: 60 MG, QD
     Route: 048
     Dates: start: 201308
  6. BUTRANS                            /00444001/ [Concomitant]
     Indication: PAIN
     Dosage: 5 MCG/HR, QWK PATCH
     Dates: start: 201308

REACTIONS (1)
  - Hyponatraemia [Recovering/Resolving]
